FAERS Safety Report 5488065-X (Version None)
Quarter: 2007Q4

REPORT INFORMATION
  Report Type: 
  Country: None (occurrence: None)
  Receive Date: 20071017
  Receipt Date: 20071010
  Transmission Date: 20080405
  Serious: Yes (Other)
  Sender: FDA-Public Use
  Company Number: US-AVENTIS-200717196US

PATIENT
  Sex: Female

DRUGS (4)
  1. LOVENOX [Suspect]
     Indication: PREGNANCY
     Route: 058
  2. LOVENOX [Suspect]
     Indication: PROPHYLAXIS
     Route: 058
  3. ASPIRIN [Concomitant]
     Dosage: DOSE: UNK
  4. FOLIC ACID [Concomitant]
     Dosage: DOSE: UNK

REACTIONS (2)
  - ABORTION SPONTANEOUS [None]
  - DRUG EXPOSURE DURING PREGNANCY [None]
